FAERS Safety Report 11190635 (Version 3)
Quarter: 2015Q3

REPORT INFORMATION
  Report Type: Spontaneous
  Country: DE (occurrence: JP)
  Receive Date: 20150615
  Receipt Date: 20150707
  Transmission Date: 20151125
  Serious: Yes (Other)
  Sender: FDA-Public Use
  Company Number: JP-BRACCO-009176

PATIENT
  Age: 66 Year
  Sex: Female

DRUGS (1)
  1. IOPAMIRON [Suspect]
     Active Substance: IOPAMIDOL
     Indication: COMPUTERISED TOMOGRAM
     Route: 040
     Dates: start: 20141225, end: 20141225

REACTIONS (2)
  - Gastrointestinal oedema [Recovered/Resolved]
  - Nausea [Recovered/Resolved]

NARRATIVE: CASE EVENT DATE: 20141225
